FAERS Safety Report 15748627 (Version 2)
Quarter: 2018Q4

REPORT INFORMATION
  Report Type: Report from Study
  Country: GB (occurrence: GB)
  Receive Date: 20181221
  Receipt Date: 20181228
  Transmission Date: 20190205
  Serious: Yes (Other)
  Sender: FDA-Public Use
  Company Number: GB-ASTRAZENECA-2018SF66846

PATIENT
  Age: 20573 Day
  Sex: Female

DRUGS (8)
  1. PREDNISOLONE. [Concomitant]
     Active Substance: PREDNISOLONE
     Indication: RHEUMATOID ARTHRITIS
     Route: 048
     Dates: start: 2016
  2. OLAPARIB. [Suspect]
     Active Substance: OLAPARIB
     Indication: OVARIAN CANCER
     Route: 048
     Dates: start: 20181012, end: 20181023
  3. MUCOGEL [Concomitant]
     Active Substance: ALUMINUM HYDROXIDE\MAGNESIUM HYDROXIDE
     Indication: STOMA CARE
     Route: 048
     Dates: start: 20180530
  4. TURMERIC [Concomitant]
     Active Substance: HERBALS\TURMERIC
     Route: 048
  5. OMEPRAZOLE. [Concomitant]
     Active Substance: OMEPRAZOLE
     Indication: GASTROINTESTINAL STOMA OUTPUT ABNORMAL
     Route: 048
     Dates: start: 20180929
  6. SANDO K [Concomitant]
     Indication: BLOOD POTASSIUM DECREASED
     Dates: start: 20180929
  7. FOLIC ACID. [Concomitant]
     Active Substance: FOLIC ACID
     Indication: BLOOD MAGNESIUM DECREASED
     Route: 048
     Dates: start: 2017
  8. OLAPARIB. [Suspect]
     Active Substance: OLAPARIB
     Indication: OVARIAN CANCER
     Route: 048
     Dates: start: 20180914, end: 20181001

REACTIONS (3)
  - Acute kidney injury [Recovered/Resolved with Sequelae]
  - Electrolyte imbalance [Recovered/Resolved]
  - Hyponatraemia [Recovered/Resolved]

NARRATIVE: CASE EVENT DATE: 20180928
